FAERS Safety Report 9648231 (Version 1)
Quarter: 2013Q4

REPORT INFORMATION
  Report Type: Spontaneous
  Country: HU (occurrence: HU)
  Receive Date: 20131028
  Receipt Date: 20131028
  Transmission Date: 20140711
  Serious: Yes (Hospitalization)
  Sender: FDA-Public Use
  Company Number: HU-UCBSA-101052

PATIENT
  Age: 62 Year
  Sex: Female

DRUGS (8)
  1. CIMZIA [Suspect]
     Indication: RHEUMATOID ARTHRITIS
     Route: 058
     Dates: start: 20120228, end: 20120228
  2. RAMIPRIL [Concomitant]
     Indication: HYPERTENSION
     Route: 048
  3. AMLODIPIN [Concomitant]
     Indication: HYPERTENSION
     Dosage: 5 MG DAILY
     Route: 048
     Dates: start: 2000
  4. METOPROLOL [Concomitant]
     Indication: HYPERTENSION
     Dosage: 100MG DAILY
     Route: 048
     Dates: start: 2000
  5. ASPIRIN [Concomitant]
     Indication: HYPERTENSION
     Dosage: 100 MG DAILY
     Route: 048
     Dates: start: 2000
  6. SIMVASTATIN [Concomitant]
     Indication: HYPERCHOLESTEROLAEMIA
     Dosage: 20 MG DAILY
     Route: 048
     Dates: start: 2000
  7. APOFAMOTIDINE [Concomitant]
     Indication: GASTROOESOPHAGEAL REFLUX DISEASE
     Dosage: 40MG DAILY
     Route: 048
     Dates: start: 2002
  8. NOOTROPIL [Concomitant]
     Indication: COGNITIVE DISORDER
     Dosage: 1200MG DAILY
     Route: 048
     Dates: start: 2000

REACTIONS (1)
  - Oedema [Recovering/Resolving]
